FAERS Safety Report 5284815-6 (Version None)
Quarter: 2007Q2

REPORT INFORMATION
  Report Type: 
  Country: None (occurrence: None)
  Receive Date: 20070403
  Receipt Date: 20070326
  Transmission Date: 20071010
  Serious: Yes (Other)
  Sender: FDA-Public Use
  Company Number: CA-BRISTOL-MYERS SQUIBB COMPANY-13727078

PATIENT
  Age: 68 Year
  Sex: Female

DRUGS (2)
  1. DIDANOSINE [Suspect]
  2. VALGANCICLOVIR HCL [Interacting]

REACTIONS (5)
  - ABDOMINAL DISCOMFORT [None]
  - CD4 LYMPHOCYTES DECREASED [None]
  - DRUG INTERACTION [None]
  - MITOCHONDRIAL TOXICITY [None]
  - NAUSEA [None]
